FAERS Safety Report 20018766 (Version 1)
Quarter: 2021Q4

REPORT INFORMATION
  Report Type: Other
  Country: None (occurrence: US)
  Receive Date: 20211101
  Receipt Date: 20211101
  Transmission Date: 20220303
  Serious: Yes (Other)
  Sender: FDA-Public Use
  Company Number: US-Luoxin Aurovitas Pharma(chengdu) Co.,Ltd.-2121271

PATIENT
  Age: 67 Year
  Sex: Male

DRUGS (5)
  1. TOBRAMYCIN [Suspect]
     Active Substance: TOBRAMYCIN
     Indication: Bacteraemia
  2. CEFTRIAXONE [Suspect]
     Active Substance: CEFTRIAXONE
  3. MEROPENEM [Concomitant]
     Active Substance: MEROPENEM
  4. VANCOMYCIN [Concomitant]
     Active Substance: VANCOMYCIN
  5. METRONIDAZOLE [Concomitant]
     Active Substance: METRONIDAZOLE

REACTIONS (2)
  - Ototoxicity [Unknown]
  - Chronic kidney disease [Unknown]
